FAERS Safety Report 18027616 (Version 1)
Quarter: 2020Q3

REPORT INFORMATION
  Report Type: Spontaneous
  Country: GB (occurrence: GB)
  Receive Date: 20200715
  Receipt Date: 20200715
  Transmission Date: 20201103
  Serious: Yes (Life-Threatening, Hospitalization)
  Sender: FDA-Public Use
  Company Number: NVSC2020GB197885

PATIENT
  Age: 41 Year
  Sex: Male

DRUGS (4)
  1. CEFTRIAXONE SODIUM. [Suspect]
     Active Substance: CEFTRIAXONE SODIUM
     Indication: CELLULITIS
     Dosage: 1 DF, QD (1 DF, 1X/DAY)
     Route: 042
  2. CETIRIZINE [Concomitant]
     Active Substance: CETIRIZINE HYDROCHLORIDE
     Indication: PRURITUS
     Dosage: 10 MG, QD (10 MG, 1X/DAY)
     Route: 048
  3. FLUCLOXACILLIN [Suspect]
     Active Substance: FLUCLOXACILLIN
     Indication: CELLULITIS
     Dosage: 4 G, QD (1 G, 4X/DAY)
     Route: 048
  4. PARACETAMOL [Concomitant]
     Active Substance: ACETAMINOPHEN
     Indication: PAIN
     Dosage: 4 DF, QD (1 DF, 4X/DAY)
     Route: 065

REACTIONS (4)
  - Anaphylactic reaction [Not Recovered/Not Resolved]
  - Swelling face [Not Recovered/Not Resolved]
  - Rash [Not Recovered/Not Resolved]
  - Peripheral swelling [Not Recovered/Not Resolved]

NARRATIVE: CASE EVENT DATE: 20080304
